FAERS Safety Report 23291099 (Version 2)
Quarter: 2023Q4

REPORT INFORMATION
  Report Type: Spontaneous
  Country: KR (occurrence: KR)
  Receive Date: 20231213
  Receipt Date: 20231215
  Transmission Date: 20240109
  Serious: Yes (Other)
  Sender: FDA-Public Use
  Company Number: KR-SA-2023SA382953

PATIENT
  Age: 36 Year
  Sex: Female

DRUGS (4)
  1. DUPILUMAB [Suspect]
     Active Substance: DUPILUMAB
     Indication: Eczema
     Dosage: UNK
  2. DUPILUMAB [Suspect]
     Active Substance: DUPILUMAB
     Indication: Neurodermatitis
  3. METHOTREXATE [Concomitant]
     Active Substance: METHOTREXATE
     Indication: Eczema
     Dosage: UNK
     Route: 048
  4. METHOTREXATE [Concomitant]
     Active Substance: METHOTREXATE
     Indication: Neurodermatitis

REACTIONS (12)
  - Cutaneous T-cell lymphoma stage IV [Recovering/Resolving]
  - Erythema [Recovering/Resolving]
  - Skin plaque [Recovering/Resolving]
  - Nodule [Recovering/Resolving]
  - Papule [Recovering/Resolving]
  - Pruritus [Recovering/Resolving]
  - Skin abrasion [Recovering/Resolving]
  - Hyperkeratosis [Recovering/Resolving]
  - Acanthosis [Recovering/Resolving]
  - Lymphocytic infiltration [Recovering/Resolving]
  - Eosinophilia [Recovering/Resolving]
  - Metastases to lymph nodes [Recovering/Resolving]
